FAERS Safety Report 7008457-7 (Version None)
Quarter: 2010Q3

REPORT INFORMATION
  Report Type: 
  Country: None (occurrence: None)
  Receive Date: 20100922
  Receipt Date: 20100913
  Transmission Date: 20110219
  Serious: No
  Sender: FDA-Public Use
  Company Number: US-B.I. PHARMACEUTICALS,INC./RIDGEFIELD-2010-BP-10390BP

PATIENT
  Sex: Female

DRUGS (2)
  1. SPIRIVA [Suspect]
     Indication: WHEEZING
     Dosage: 18 MCG
     Route: 055
     Dates: start: 20100908
  2. DIOVAN [Concomitant]
     Indication: HYPERTENSION

REACTIONS (5)
  - COUGH [None]
  - DRY EYE [None]
  - DYSPNOEA [None]
  - READING DISORDER [None]
  - VISION BLURRED [None]
